FAERS Safety Report 10053298 (Version 3)
Quarter: 2015Q4

REPORT INFORMATION
  Report Type: Spontaneous
  Country: IT (occurrence: IT)
  Receive Date: 20140402
  Receipt Date: 20151023
  Transmission Date: 20160304
  Serious: Yes (Hospitalization)
  Sender: FDA-Public Use
  Company Number: IT-TEVA-472537ISR

PATIENT
  Age: 62 Year
  Sex: Female
  Weight: 89 kg

DRUGS (14)
  1. SIMVASTATIN. [Concomitant]
     Active Substance: SIMVASTATIN
     Indication: DYSLIPIDAEMIA
     Dosage: 40 MILLIGRAM DAILY;
     Route: 048
  2. PRONTINAL [Concomitant]
     Active Substance: BECLOMETHASONE DIPROPIONATE
     Indication: ASTHMA
     Dosage: 1 DOSAGE FORMS DAILY;
     Route: 055
  3. PANTORC 20 MG [Concomitant]
     Indication: CHRONIC GASTRITIS
     Dosage: 1 DOSAGE FORMS DAILY;
     Route: 048
  4. TRAZODONE [Concomitant]
     Active Substance: TRAZODONE HYDROCHLORIDE
     Indication: BIPOLAR DISORDER
     Dosage: 75 MILLIGRAM DAILY;
     Route: 048
     Dates: start: 20131207, end: 20140119
  5. CARBOLITHIUM TEVA 150MG [Suspect]
     Active Substance: LITHIUM
     Indication: BIPOLAR DISORDER
     Dosage: 4 DOSAGE FORMS DAILY;
     Route: 048
     Dates: start: 20140109, end: 20140118
  6. SEROQUEL [Concomitant]
     Active Substance: QUETIAPINE FUMARATE
     Indication: BIPOLAR DISORDER
     Dosage: 1 DOSAGE FORMS DAILY;
     Route: 048
  7. EFEXOR 37.5 MG [Concomitant]
     Dosage: 1 DOSAGE FORMS DAILY;
     Route: 048
  8. ELONTRIL [Concomitant]
     Active Substance: BUPROPION HYDROCHLORIDE
     Indication: BIPOLAR DISORDER
     Dosage: 300 MILLIGRAM DAILY;
     Route: 048
     Dates: start: 20131204, end: 20140119
  9. NOZINAN [Concomitant]
     Active Substance: LEVOMEPROMAZINE
     Indication: INSOMNIA
     Dosage: 25 MILLIGRAM DAILY;
     Route: 048
     Dates: start: 20140116, end: 20140119
  10. DELAPRIDE 30 MG + 1.25 MG [Interacting]
     Active Substance: DELAPRIL HYDROCHLORIDE\INDAPAMIDE
     Indication: HYPERTENSION
     Dosage: 1 DOSAGE FORMS DAILY;
     Route: 048
     Dates: start: 20130701, end: 20140118
  11. PRONTINAL [Concomitant]
     Active Substance: BECLOMETHASONE DIPROPIONATE
     Indication: CHRONIC OBSTRUCTIVE PULMONARY DISEASE
  12. NORFLOXACIN [Concomitant]
     Active Substance: NORFLOXACIN
     Indication: ESCHERICHIA URINARY TRACT INFECTION
     Dosage: 4 DOSAGE FORMS DAILY;
     Route: 048
     Dates: start: 20140109, end: 20140116
  13. SOYA LECITHIN [Concomitant]
     Active Substance: DIETARY SUPPLEMENT
     Indication: MENOPAUSAL SYMPTOMS
     Dosage: 1 DOSAGE FORMS DAILY;
     Dates: start: 20131206
  14. ZYPREXA 5MG [Concomitant]
     Indication: BIPOLAR DISORDER
     Dosage: 1 DOSAGE FORMS DAILY;
     Route: 048

REACTIONS (11)
  - Drug interaction [Recovered/Resolved]
  - Irritability [Recovered/Resolved]
  - Disorientation [Recovered/Resolved]
  - Renal impairment [Recovered/Resolved]
  - Toxicity to various agents [Recovered/Resolved]
  - Psychomotor skills impaired [Unknown]
  - Bradykinesia [Recovered/Resolved]
  - Drug prescribing error [Recovered/Resolved]
  - Nausea [Recovered/Resolved]
  - Confusional state [Recovered/Resolved]
  - Dehydration [Unknown]

NARRATIVE: CASE EVENT DATE: 20140118
